FAERS Safety Report 13238939 (Version 16)
Quarter: 2018Q2

REPORT INFORMATION
  Report Type: Spontaneous
  Country: IT (occurrence: IT)
  Receive Date: 20170216
  Receipt Date: 20180409
  Transmission Date: 20180711
  Serious: Yes (Hospitalization, Other)
  Sender: FDA-Public Use
  Company Number: IT-SA-2017SA024957

PATIENT
  Age: 36 Year
  Sex: Female

DRUGS (2)
  1. AUBAGIO [Suspect]
     Active Substance: TERIFLUNOMIDE
     Indication: RELAPSING-REMITTING MULTIPLE SCLEROSIS
     Route: 048
     Dates: start: 20161107, end: 20170128
  2. TYSABRI [Suspect]
     Active Substance: NATALIZUMAB
     Indication: RELAPSING-REMITTING MULTIPLE SCLEROSIS
     Dosage: 300 MG SOL?CONC DOSE:1 UNIT(S)
     Route: 042
     Dates: start: 20131107, end: 20160523

REACTIONS (8)
  - Progressive multifocal leukoencephalopathy [Recovered/Resolved]
  - Motor dysfunction [Recovered/Resolved]
  - Asthenia [Recovered/Resolved]
  - Central nervous system lesion [Recovered/Resolved]
  - Language disorder [Recovered/Resolved]
  - JC polyomavirus test positive [Recovered/Resolved]
  - Aphasia [Recovered/Resolved]
  - Speech disorder [Recovered/Resolved]

NARRATIVE: CASE EVENT DATE: 20170128
